FAERS Safety Report 17412874 (Version 1)
Quarter: 2020Q1

REPORT INFORMATION
  Report Type: Spontaneous
  Country: CN (occurrence: CN)
  Receive Date: 20200213
  Receipt Date: 20200213
  Transmission Date: 20200409
  Serious: Yes (Life-Threatening, Other)
  Sender: FDA-Public Use
  Company Number: CN-ACCORD-172332

PATIENT
  Age: 65 Year
  Sex: Male

DRUGS (2)
  1. CISPLATIN. [Suspect]
     Active Substance: CISPLATIN
     Indication: LUNG ADENOCARCINOMA STAGE III
     Dosage: D1-3 AND Q21D
  2. ETOPOSIDE. [Suspect]
     Active Substance: ETOPOSIDE
     Indication: LUNG ADENOCARCINOMA STAGE III
     Dosage: 0.1 D1-5

REACTIONS (4)
  - Bone marrow failure [Unknown]
  - Thrombocytopenia [Unknown]
  - Granulocytopenia [Unknown]
  - Hepatic function abnormal [Unknown]
